FAERS Safety Report 14652982 (Version 1)
Quarter: 2018Q1

REPORT INFORMATION
  Report Type: Report from Study
  Country: CN (occurrence: CN)
  Receive Date: 20180319
  Receipt Date: 20180319
  Transmission Date: 20180509
  Serious: Yes (Death, Other)
  Sender: FDA-Public Use
  Company Number: CN-ROCHE-1452197

PATIENT

DRUGS (3)
  1. CAPECITABINE. [Suspect]
     Active Substance: CAPECITABINE
     Indication: GASTRIC CANCER
     Dosage: ORAL ADMINISTRATION 30 MINUTES AFTER MEALS, DAYS 1-14, EVERY THREE WEEKS.
     Route: 048
  2. CISPLATIN. [Suspect]
     Active Substance: CISPLATIN
     Indication: GASTRIC CANCER
     Dosage: ADDED TO 500 ML NS FOR INTRAVENOUS DRIP AT 2 HOURS, DAY 1, EVERY THREE WEEKS
     Route: 042
  3. PACLITAXEL. [Suspect]
     Active Substance: PACLITAXEL
     Indication: GASTRIC CANCER
     Dosage: ADDED TO 250 ML NS FOR INTRAVENOUS DRIP AT 3 HOURS, DAY 1, EVERY THREE WEEKS
     Route: 042

REACTIONS (19)
  - Sudden death [Fatal]
  - Neurotoxicity [Unknown]
  - Neutropenia [Unknown]
  - Vomiting [Unknown]
  - Drug hypersensitivity [Unknown]
  - Fatigue [Unknown]
  - Nausea [Unknown]
  - Stomatitis [Unknown]
  - Palmar-plantar erythrodysaesthesia syndrome [Unknown]
  - Angioedema [Unknown]
  - Leukopenia [Unknown]
  - Diarrhoea [Unknown]
  - Multiple organ dysfunction syndrome [Unknown]
  - Anaemia [Unknown]
  - Blood bilirubin increased [Unknown]
  - Haemorrhage [Unknown]
  - Thrombocytopenia [Unknown]
  - Agranulocytosis [Unknown]
  - Hepatic function abnormal [Unknown]
